FAERS Safety Report 23802462 (Version 1)
Quarter: 2024Q2

REPORT INFORMATION
  Report Type: Spontaneous
  Country: US (occurrence: US)
  Receive Date: 20240501
  Receipt Date: 20240501
  Transmission Date: 20240716
  Serious: Yes (Other)
  Sender: FDA-Public Use
  Company Number: US-BRISTOL-MYERS SQUIBB COMPANY-2024-066195

PATIENT
  Sex: Male

DRUGS (3)
  1. EMPLICITI [Suspect]
     Active Substance: ELOTUZUMAB
     Indication: Product used for unknown indication
     Dates: start: 202304
  2. EMPLICITI [Suspect]
     Active Substance: ELOTUZUMAB
     Dates: start: 20231205
  3. EMPLICITI [Suspect]
     Active Substance: ELOTUZUMAB
     Dates: start: 20231107

REACTIONS (5)
  - Chills [Unknown]
  - Anaphylactic reaction [Unknown]
  - Suspected product contamination [Unknown]
  - Product formulation issue [Unknown]
  - Infusion related reaction [Unknown]

NARRATIVE: CASE EVENT DATE: 20231107
